FAERS Safety Report 9475159 (Version 2)
Quarter: 2013Q3

REPORT INFORMATION
  Report Type: Spontaneous
  Country: JP (occurrence: JP)
  Receive Date: 20130824
  Receipt Date: 20130824
  Transmission Date: 20140515
  Serious: Yes (Other)
  Sender: FDA-Public Use
  Company Number: PHHY2012JP114943

PATIENT
  Age: 46 Year
  Sex: Male

DRUGS (4)
  1. TACROLIMUS [Suspect]
     Indication: LIVER TRANSPLANT
  2. CICLOSPORIN [Concomitant]
     Indication: LIVER TRANSPLANT
     Route: 048
  3. CELLCEPT [Concomitant]
     Indication: LIVER TRANSPLANT
  4. CORTICOSTEROIDS [Concomitant]
     Indication: LIVER TRANSPLANT

REACTIONS (7)
  - Thrombotic microangiopathy [Unknown]
  - Posterior reversible encephalopathy syndrome [Recovered/Resolved]
  - Tremor [Recovered/Resolved]
  - Convulsion [Recovered/Resolved]
  - Hypertension [Unknown]
  - Blood lactate dehydrogenase increased [Unknown]
  - Platelet count decreased [Unknown]
